FAERS Safety Report 4447612-7 (Version None)
Quarter: 2004Q3

REPORT INFORMATION
  Report Type: 
  Country: None (occurrence: None)
  Receive Date: 20040823
  Receipt Date: 20040629
  Transmission Date: 20050211
  Serious: No
  Sender: FDA-Public Use
  Company Number: PHEH2004US07018

PATIENT
  Age: 57 Year
  Sex: Female

DRUGS (8)
  1. ZELNORM [Suspect]
     Indication: IRRITABLE BOWEL SYNDROME
     Dosage: 1/2 TAB BID ORAL
     Route: 048
     Dates: start: 20040628
  2. NEURONTIN [Concomitant]
  3. MOBIC [Concomitant]
  4. ACIPHEX [Concomitant]
  5. ULTRAM [Concomitant]
  6. BENTYL [Concomitant]
  7. KLONOPIN [Concomitant]
  8. TYLENOL [Concomitant]

REACTIONS (3)
  - CONSTIPATION [None]
  - OEDEMA PERIPHERAL [None]
  - WEIGHT INCREASED [None]
